FAERS Safety Report 11026123 (Version 1)
Quarter: 2015Q2

REPORT INFORMATION
  Report Type: Spontaneous
  Country: US (occurrence: None)
  Receive Date: 20150413
  Receipt Date: 20150413
  Transmission Date: 20150821
  Serious: Yes (Other)
  Sender: FDA-Public Use
  Company Number: None

PATIENT
  Age: 77 Year
  Sex: Female
  Weight: 48.08 kg

DRUGS (18)
  1. PRESERVISION AREDS 2 VITAMINS [Suspect]
     Active Substance: MINERALS\VITAMINS
     Indication: MACULAR DEGENERATION
     Dosage: SOFT GELDS ,1 IN AM, 1 IN PM BY MOUTH, MARCH 20,2015
     Route: 048
     Dates: start: 20150320, end: 20150401
  2. CITALOPRAM [Concomitant]
     Active Substance: CITALOPRAM HYDROBROMIDE
  3. SIMVASTATIN. [Concomitant]
     Active Substance: SIMVASTATIN
  4. NYSTATIN. [Concomitant]
     Active Substance: NYSTATIN
  5. CALTRATE+D [Concomitant]
  6. LACTAID [Concomitant]
     Active Substance: LACTASE
  7. SIMETHECONE [Concomitant]
  8. METROPROLOL [Concomitant]
     Active Substance: METOPROLOL
  9. ADVARI DISKUS [Concomitant]
  10. DIOVAN [Concomitant]
     Active Substance: VALSARTAN
  11. HYDRALAZINE [Concomitant]
     Active Substance: HYDRALAZINE HYDROCHLORIDE
  12. TUDORZA PRESSAIR [Concomitant]
     Active Substance: ACLIDINIUM BROMIDE
  13. PRESERVISION AREDS 2 VITAMINS [Suspect]
     Active Substance: MINERALS\VITAMINS
     Dosage: SOFT GELDS ,1 IN AM, 1 IN PM BY MOUTH, MARCH 20,2015
     Route: 048
     Dates: start: 20150320, end: 20150401
  14. MULTIVITAMIN [Concomitant]
     Active Substance: VITAMINS
  15. XANAX [Concomitant]
     Active Substance: ALPRAZOLAM
  16. PLAVIX [Concomitant]
     Active Substance: CLOPIDOGREL BISULFATE
  17. POTASSIUM CL. [Concomitant]
  18. PROBIOTIC [Concomitant]
     Active Substance: PROBIOTICS NOS

REACTIONS (3)
  - Eyelid oedema [None]
  - Pruritus [None]
  - Dry eye [None]

NARRATIVE: CASE EVENT DATE: 20150330
